FAERS Safety Report 10788293 (Version 1)
Quarter: 2015Q1

REPORT INFORMATION
  Report Type: Spontaneous
  Country: IT (occurrence: None)
  Receive Date: 20150210
  Receipt Date: 20150210
  Transmission Date: 20150721
  Serious: Yes (Hospitalization)
  Sender: FDA-Public Use
  Company Number: FK201500603

PATIENT
  Age: 79 Year
  Sex: Male

DRUGS (1)
  1. AMIODARONE HCL [Suspect]
     Active Substance: AMIODARONE HYDROCHLORIDE
     Indication: ATRIAL FIBRILLATION
     Dosage: 200 MG, 4 X DAILY FOR 5 DAYS/WEEK, UNKNOWN

REACTIONS (3)
  - Traumatic lung injury [None]
  - Organising pneumonia [None]
  - Pleural effusion [None]
